FAERS Safety Report 10582469 (Version 4)
Quarter: 2015Q1

REPORT INFORMATION
  Report Type: Report from Study
  Country: BR (occurrence: BR)
  Receive Date: 20141113
  Receipt Date: 20150204
  Transmission Date: 20150720
  Serious: Yes (Disabling)
  Sender: FDA-Public Use
  Company Number: BR-ABBVIE-14K-020-1280745-00

PATIENT
  Age: 60 Year
  Sex: Female
  Weight: 80 kg

DRUGS (6)
  1. KIOS [Concomitant]
     Indication: GASTRIC DISORDER
     Route: 048
     Dates: start: 201305
  2. PREDSIM [Concomitant]
     Active Substance: PREDNISOLONE
     Indication: ARTHRITIS
     Route: 048
     Dates: start: 201402
  3. PREDSIM [Concomitant]
     Active Substance: PREDNISOLONE
     Indication: RHEUMATOID ARTHRITIS
     Route: 048
     Dates: start: 201409
  4. PREDSIM [Concomitant]
     Active Substance: PREDNISOLONE
     Indication: PAIN
     Route: 048
  5. NISULID [Concomitant]
     Active Substance: NIMESULIDE
     Indication: ARTHRITIS
     Route: 048
  6. HUMIRA [Suspect]
     Active Substance: ADALIMUMAB
     Indication: RHEUMATOID ARTHRITIS
     Route: 058
     Dates: start: 20140702, end: 20140730

REACTIONS (21)
  - Injection site haemorrhage [Unknown]
  - Impaired healing [Recovering/Resolving]
  - Arthralgia [Not Recovered/Not Resolved]
  - Procedural site reaction [Recovering/Resolving]
  - Injection site irritation [Unknown]
  - Suture related complication [Unknown]
  - Abdominal discomfort [Recovering/Resolving]
  - Injection site pain [Unknown]
  - Injection site erythema [Recovering/Resolving]
  - Hand deformity [Not Recovered/Not Resolved]
  - Foot deformity [Not Recovered/Not Resolved]
  - Injection site pain [Unknown]
  - Wound secretion [Not Recovered/Not Resolved]
  - Inflammation [Unknown]
  - Injection site haemorrhage [Unknown]
  - Abasia [Not Recovered/Not Resolved]
  - Injection site irritation [Unknown]
  - Gastrointestinal bacterial infection [Unknown]
  - Suture related complication [Not Recovered/Not Resolved]
  - Musculoskeletal stiffness [Recovering/Resolving]
  - Suture rupture [Not Recovered/Not Resolved]

NARRATIVE: CASE EVENT DATE: 2014
